FAERS Safety Report 25791141 (Version 1)
Quarter: 2025Q3

REPORT INFORMATION
  Report Type: Spontaneous
  Country: US (occurrence: US)
  Receive Date: 20250911
  Receipt Date: 20250911
  Transmission Date: 20251021
  Serious: Yes (Other)
  Sender: HIKMA
  Company Number: US-HIKMA PHARMACEUTICALS USA INC.-US-H14001-25-09988

PATIENT
  Sex: Female

DRUGS (7)
  1. AMIKACIN [Suspect]
     Active Substance: AMIKACIN
     Indication: Mycobacterium avium complex infection
     Dosage: 15 MILLIGRAM/KILOGRAM, TIW (MONDAY, WEDNESDAY, FRIDAY)
     Route: 042
  2. AZITHROMYCIN [Suspect]
     Active Substance: AZITHROMYCIN
     Dosage: 250 MILLIGRAM, QD, SECOND COURSE
     Route: 048
  3. AZITHROMYCIN [Suspect]
     Active Substance: AZITHROMYCIN
     Indication: Mycobacterium avium complex infection
     Route: 065
     Dates: start: 20210712, end: 202306
  4. ETHAMBUTOL [Suspect]
     Active Substance: ETHAMBUTOL HYDROCHLORIDE
     Dosage: 1000 MILLIGRAM, QD, SECOND COURSE
     Route: 048
  5. ETHAMBUTOL [Suspect]
     Active Substance: ETHAMBUTOL HYDROCHLORIDE
     Indication: Mycobacterium avium complex infection
     Route: 065
     Dates: start: 20210712, end: 202306
  6. RIFAMPIN [Suspect]
     Active Substance: RIFAMPIN
     Dosage: 600 MILLIGRAM, QD, SECOND COURSE
     Route: 048
  7. RIFAMPIN [Suspect]
     Active Substance: RIFAMPIN
     Indication: Mycobacterium avium complex infection
     Route: 065
     Dates: start: 20210712, end: 202306

REACTIONS (2)
  - Ototoxicity [Unknown]
  - Disease progression [Unknown]
